FAERS Safety Report 13789965 (Version 1)
Quarter: 2017Q3

REPORT INFORMATION
  Report Type: Spontaneous
  Country: US (occurrence: US)
  Receive Date: 20170725
  Receipt Date: 20170725
  Transmission Date: 20171127
  Serious: No
  Sender: FDA-Public Use
  Company Number: US-PFIZER INC-2017318445

PATIENT
  Sex: Female

DRUGS (1)
  1. METHOTREXATE SODIUM. [Suspect]
     Active Substance: METHOTREXATE SODIUM
     Indication: RHEUMATOID ARTHRITIS
     Dosage: 20 MG, WEEKLY

REACTIONS (6)
  - Arthralgia [Unknown]
  - Drug ineffective [Unknown]
  - Musculoskeletal stiffness [Unknown]
  - Joint swelling [Unknown]
  - Fatigue [Unknown]
  - Asthenia [Unknown]
